FAERS Safety Report 17201712 (Version 1)
Quarter: 2020Q1

REPORT INFORMATION
  Report Type: Spontaneous
  Country: DE (occurrence: DE)
  Receive Date: 20191224
  Receipt Date: 20191224
  Transmission Date: 20200409
  Serious: Yes (Other)
  Sender: FDA-Public Use
  Company Number: None

PATIENT
  Age: 42 Year
  Sex: Female
  Weight: 50 kg

DRUGS (9)
  1. LAMOTRIGINE. [Concomitant]
     Active Substance: LAMOTRIGINE
  2. MAGNESIUM [Concomitant]
     Active Substance: MAGNESIUM
  3. EMGALITY [Suspect]
     Active Substance: GALCANEZUMAB-GNLM
     Indication: MIGRAINE
     Dosage: ?          OTHER FREQUENCY:MONTH;?
     Route: 030
     Dates: start: 20191109
  4. KEPPRA [Concomitant]
     Active Substance: LEVETIRACETAM
  5. TRIPTANS [Concomitant]
     Active Substance: UNSPECIFIED INGREDIENT
  6. TILIDIN [Concomitant]
     Active Substance: NALOXONE HYDROCHLORIDE\TILIDINE HYDROCHLORIDE
  7. FLUOXETIN [Concomitant]
     Active Substance: FLUOXETINE HYDROCHLORIDE
  8. BOTOX [Concomitant]
     Active Substance: ONABOTULINUMTOXINA
  9. NAPROXEN. [Concomitant]
     Active Substance: NAPROXEN

REACTIONS (3)
  - Depression [None]
  - Hypersomnia [None]
  - Suicidal ideation [None]

NARRATIVE: CASE EVENT DATE: 20191204
